FAERS Safety Report 10703781 (Version 3)
Quarter: 2017Q4

REPORT INFORMATION
  Report Type: Spontaneous
  Country: US (occurrence: US)
  Receive Date: 20150112
  Receipt Date: 20171031
  Transmission Date: 20180320
  Serious: Yes (Other)
  Sender: FDA-Public Use
  Company Number: US-PFIZER INC-2015011616

PATIENT
  Age: 71 Year
  Sex: Female
  Weight: 73.47 kg

DRUGS (1)
  1. LYRICA [Suspect]
     Active Substance: PREGABALIN
     Indication: FIBROMYALGIA
     Dosage: 75 MG, ONCE A DAY
     Route: 048
     Dates: start: 2006

REACTIONS (6)
  - Intentional product misuse [Unknown]
  - Product use issue [Unknown]
  - Pain [Unknown]
  - Joint swelling [Unknown]
  - Ankle fracture [Unknown]
  - Hypoacusis [Unknown]

NARRATIVE: CASE EVENT DATE: 2006
